FAERS Safety Report 10220240 (Version 2)
Quarter: 2014Q3

REPORT INFORMATION
  Report Type: Spontaneous
  Country: IT (occurrence: IT)
  Receive Date: 20140606
  Receipt Date: 20140903
  Transmission Date: 20150326
  Serious: Yes (Other)
  Sender: FDA-Public Use
  Company Number: IT-ROCHE-1413442

PATIENT
  Age: 52 Year
  Sex: Male

DRUGS (4)
  1. EPREX [Concomitant]
     Active Substance: ERYTHROPOIETIN
     Indication: ANAEMIA
     Route: 058
     Dates: start: 20140327, end: 20140424
  2. VICTRELIS [Suspect]
     Active Substance: BOCEPREVIR
     Indication: HEPATITIS C
     Route: 048
     Dates: start: 20140227, end: 20140424
  3. COPEGUS [Suspect]
     Active Substance: RIBAVIRIN
     Indication: HEPATITIS C
     Route: 048
     Dates: start: 20140129, end: 20140424
  4. PEGINTRON [Suspect]
     Active Substance: PEGINTERFERON ALFA-2B
     Indication: HEPATITIS C
     Route: 058
     Dates: start: 20140129, end: 20140424

REACTIONS (5)
  - Syncope [Recovered/Resolved]
  - Altered state of consciousness [Recovered/Resolved]
  - Dizziness [Recovered/Resolved]
  - Injury [Recovered/Resolved]
  - Presyncope [Recovered/Resolved]

NARRATIVE: CASE EVENT DATE: 20140329
